FAERS Safety Report 6450082-0 (Version None)
Quarter: 2009Q4

REPORT INFORMATION
  Report Type: 
  Country: None (occurrence: None)
  Receive Date: 20091123
  Receipt Date: 20091117
  Transmission Date: 20100525
  Serious: Yes (Life-Threatening)
  Sender: FDA-Public Use
  Company Number: JP-ASTRAZENECA-2008AP08827

PATIENT
  Age: 42 Year
  Sex: Male
  Weight: 65 kg

DRUGS (6)
  1. OMEPRAL [Suspect]
     Indication: REFLUX OESOPHAGITIS
     Route: 048
     Dates: start: 20080724, end: 20080814
  2. ANZIEF [Suspect]
     Indication: HYPERURICAEMIA
     Route: 048
     Dates: start: 20080724, end: 20080814
  3. PROPOFOL [Concomitant]
     Dosage: DOSE UNKNOWN
     Route: 042
  4. MICARDIS [Concomitant]
     Indication: HYPERTENSION
     Route: 048
     Dates: end: 20080724
  5. AMLODIPINE [Concomitant]
     Indication: HYPERTENSION
     Route: 048
     Dates: end: 20080822
  6. WARFARIN SODIUM [Concomitant]
     Indication: ANEURYSM
     Route: 048
     Dates: end: 20080822

REACTIONS (2)
  - BLOOD AMYLASE INCREASED [None]
  - TOXIC EPIDERMAL NECROLYSIS [None]
